FAERS Safety Report 18207559 (Version 1)
Quarter: 2020Q3

REPORT INFORMATION
  Report Type: Spontaneous
  Country: CA (occurrence: CA)
  Receive Date: 20200828
  Receipt Date: 20200828
  Transmission Date: 20201103
  Serious: Yes (Other)
  Sender: FDA-Public Use
  Company Number: CA-PFIZER INC-2020329574

PATIENT
  Age: 23 Year
  Sex: Male

DRUGS (11)
  1. SALINE [SODIUM CHLORIDE] [Concomitant]
     Active Substance: SODIUM CHLORIDE
     Dosage: UNK
  2. DEXAMETHASONE. [Concomitant]
     Active Substance: DEXAMETHASONE
     Dosage: UNK
  3. FUCIDIN [FUSIDIC ACID] [Concomitant]
     Active Substance: FUSIDIC ACID
     Dosage: UNK
  4. PDP HYDROCODONE [Suspect]
     Active Substance: HYDROCODONE
     Indication: COUGH
     Dosage: 5.0 MILLIGRAM 1 EVERY 4 HOURS
     Route: 048
  5. DESONIDE. [Concomitant]
     Active Substance: DESONIDE
     Dosage: UNK
  6. ADVIL [Suspect]
     Active Substance: IBUPROFEN
     Indication: PAIN
     Dosage: 1 DF, 4X/DAY (1 EVERY 6 HOURS)
     Route: 048
  7. SECARIS [Concomitant]
     Active Substance: PROPYLENE GLYCOL
     Dosage: UNK
  8. REFRESH LACRI?LUBE [Concomitant]
     Active Substance: MINERAL OIL\PETROLATUM
     Dosage: UNK
  9. AQUAPHOR [Concomitant]
     Active Substance: PETROLATUM
     Dosage: UNK
     Route: 061
  10. PREDNISONE. [Concomitant]
     Active Substance: PREDNISONE
     Dosage: UNK
  11. AZITHROMYCIN ANHYDROUS. [Concomitant]
     Active Substance: AZITHROMYCIN ANHYDROUS
     Dosage: UNK

REACTIONS (16)
  - Cough [Recovered/Resolved with Sequelae]
  - Dyspnoea exertional [Recovered/Resolved with Sequelae]
  - Mouth ulceration [Recovered/Resolved with Sequelae]
  - Odynophagia [Recovered/Resolved with Sequelae]
  - Pruritus genital [Recovered/Resolved with Sequelae]
  - Productive cough [Recovered/Resolved with Sequelae]
  - Chest pain [Recovered/Resolved with Sequelae]
  - Gingivitis [Recovered/Resolved with Sequelae]
  - Oral disorder [Recovered/Resolved with Sequelae]
  - Genital erythema [Recovered/Resolved with Sequelae]
  - Pyrexia [Recovered/Resolved with Sequelae]
  - Genital ulceration [Recovered/Resolved with Sequelae]
  - Scrotal ulcer [Recovered/Resolved with Sequelae]
  - Stevens-Johnson syndrome [Recovered/Resolved with Sequelae]
  - Nasal ulcer [Recovered/Resolved with Sequelae]
  - Pain [Recovered/Resolved with Sequelae]
